FAERS Safety Report 6985087-4 (Version None)
Quarter: 2010Q3

REPORT INFORMATION
  Report Type: 
  Country: None (occurrence: None)
  Receive Date: 20100915
  Receipt Date: 20100908
  Transmission Date: 20110219
  Serious: Yes (Other)
  Sender: FDA-Public Use
  Company Number: PHHO2010SE13521

PATIENT
  Sex: Male
  Weight: 86 kg

DRUGS (12)
  1. BLINDED ALISKIREN ALI+TAB+CF [Suspect]
     Indication: CARDIAC FAILURE
     Dosage: CODE NOT BROKEN
     Route: 048
     Dates: start: 20100623, end: 20100904
  2. BLINDED ENALAPRIL COMP-ENA+ [Suspect]
     Indication: CARDIAC FAILURE
     Dosage: CODE NOT BROKEN
     Route: 048
     Dates: start: 20100623, end: 20100904
  3. BLINDED NO TREATMENT RECEIVED NOMED [Suspect]
     Indication: CARDIAC FAILURE
     Dosage: CODE NOT BROKEN
     Route: 048
     Dates: start: 20100623, end: 20100904
  4. ALISKIREN [Suspect]
     Indication: CARDIAC FAILURE
     Dosage: UNK
     Route: 048
     Dates: start: 20100609, end: 20100622
  5. COMPARATOR ENALAPRIL [Suspect]
     Indication: CARDIAC FAILURE
     Dosage: UNK
     Route: 048
     Dates: start: 20100602, end: 20100608
  6. CARVEDILOL [Suspect]
     Indication: CARDIAC FAILURE
  7. DIGITALIS TAB [Concomitant]
     Indication: ATRIAL FIBRILLATION
  8. FUROSEMIDE [Concomitant]
     Indication: CARDIAC FAILURE
  9. EPLERENONE [Concomitant]
     Indication: CARDIAC FAILURE
  10. WARFARIN SODIUM [Concomitant]
     Indication: ATRIAL FIBRILLATION
  11. LEVOTHYROXINE [Concomitant]
     Indication: HYPOTHYROIDISM
  12. FINASTERIDE [Concomitant]
     Indication: BENIGN PROSTATIC HYPERPLASIA

REACTIONS (3)
  - HEART RATE DECREASED [None]
  - HYPOTENSION [None]
  - VERTIGO [None]
